FAERS Safety Report 5758443-X (Version None)
Quarter: 2008Q2

REPORT INFORMATION
  Report Type: 
  Country: None (occurrence: None)
  Receive Date: 20080603
  Receipt Date: 20080603
  Transmission Date: 20081010
  Serious: Yes (Other)
  Sender: FDA-Public Use
  Company Number: None

PATIENT
  Age: 43 Year
  Sex: Female
  Weight: 77.1115 kg

DRUGS (2)
  1. ZYRTEC [Suspect]
     Indication: MULTIPLE ALLERGIES
     Dosage: 1 TABLET        1 X DAY         PO
     Route: 048
     Dates: start: 20050101, end: 20080602
  2. ZYRTEC [Suspect]
     Indication: RHINITIS ALLERGIC
     Dosage: 1 TABLET        1 X DAY         PO
     Route: 048
     Dates: start: 20050101, end: 20080602

REACTIONS (3)
  - BURNING SENSATION [None]
  - DRUG WITHDRAWAL SYNDROME [None]
  - PRURITUS GENERALISED [None]
